FAERS Safety Report 7296141-4 (Version None)
Quarter: 2011Q1

REPORT INFORMATION
  Report Type: 
  Country: None (occurrence: None)
  Receive Date: 20110211
  Receipt Date: 20110211
  Transmission Date: 20110831
  Serious: Yes (Life-Threatening)
  Sender: FDA-Public Use
  Company Number: None

PATIENT
  Sex: Male
  Weight: 66.05 kg

DRUGS (1)
  1. LEVETIRACETAM [Suspect]
     Dosage: 1500 BID PO (PRIOR TO 2009)
     Route: 048

REACTIONS (1)
  - CONVULSION [None]
